FAERS Safety Report 16011916 (Version 1)
Quarter: 2019Q1

REPORT INFORMATION
  Report Type: Spontaneous
  Country: US (occurrence: US)
  Receive Date: 20190226
  Receipt Date: 20190226
  Transmission Date: 20190418
  Serious: Yes (Other)
  Sender: FDA-Public Use
  Company Number: None

PATIENT
  Age: 62 Year
  Sex: Male
  Weight: 56.6 kg

DRUGS (1)
  1. VANCOMYCIN [Suspect]
     Active Substance: VANCOMYCIN
     Indication: PREOPERATIVE CARE
     Dosage: ?          OTHER FREQUENCY:ONCE;?
     Route: 042

REACTIONS (2)
  - Hypotension [None]
  - Respiratory distress [None]

NARRATIVE: CASE EVENT DATE: 20190207
